FAERS Safety Report 12458882 (Version 1)
Quarter: 2016Q2

REPORT INFORMATION
  Report Type: Spontaneous
  Country: US (occurrence: None)
  Receive Date: 20160610
  Receipt Date: 20160610
  Transmission Date: 20160815
  Serious: Yes (Other)
  Sender: FDA-Public Use
  Company Number: None

PATIENT
  Age: 16 Year
  Sex: Female
  Weight: 48.08 kg

DRUGS (10)
  1. FLUDROCORTISONE [Concomitant]
     Active Substance: FLUDROCORTISONE
  2. MONTELUKAST SODIUM 10MG, 10 MG DR. REDDY^S [Suspect]
     Active Substance: MONTELUKAST SODIUM
     Indication: MULTIPLE ALLERGIES
     Dosage: 30 TABLET(S) ONCE A DAY TAKEN BY MOUTH
     Route: 048
     Dates: start: 20160608, end: 20160608
  3. NUVIGIL [Concomitant]
     Active Substance: ARMODAFINIL
  4. L-CARNITINE [Concomitant]
     Active Substance: LEVOCARNITINE
  5. MONTELUKAST SODIUM 10MG, 10 MG DR. REDDY^S [Suspect]
     Active Substance: MONTELUKAST SODIUM
     Indication: INFLAMMATION
     Dosage: 30 TABLET(S) ONCE A DAY TAKEN BY MOUTH
     Route: 048
     Dates: start: 20160608, end: 20160608
  6. MULTIVITAMIN [Concomitant]
     Active Substance: VITAMINS
  7. ALGAE [Concomitant]
  8. OMEGA [Concomitant]
     Active Substance: CONVALLARIA MAJALIS\CRATAEGUS LAEVIGATA LEAF\PROXYPHYLLINE
  9. LO LOESTRIN FE [Concomitant]
     Active Substance: ETHINYL ESTRADIOL\NORETHINDRONE ACETATE
  10. CO-Q 10 [Concomitant]

REACTIONS (7)
  - Panic disorder [None]
  - Apathy [None]
  - Lethargy [None]
  - Crying [None]
  - Delirium [None]
  - Irritability [None]
  - Tachycardia [None]

NARRATIVE: CASE EVENT DATE: 20160609
